FAERS Safety Report 4667345-1 (Version None)
Quarter: 2005Q2

REPORT INFORMATION
  Report Type: 
  Country: None (occurrence: None)
  Receive Date: 20050502
  Receipt Date: 20050221
  Transmission Date: 20051028
  Serious: Yes (Hospitalization)
  Sender: FDA-Public Use
  Company Number: PHEH2005US02350

PATIENT

DRUGS (1)
  1. LOTREL [Suspect]

REACTIONS (1)
  - PANCREATITIS [None]
